FAERS Safety Report 24875668 (Version 3)
Quarter: 2025Q3

REPORT INFORMATION
  Report Type: Report from Study
  Country: US (occurrence: US)
  Receive Date: 20250122
  Receipt Date: 20250714
  Transmission Date: 20251020
  Serious: Yes (Other)
  Sender: ABBVIE
  Company Number: US-ABBVIE-6095801

PATIENT
  Age: 71 Year
  Sex: Female

DRUGS (3)
  1. IMBRUVICA [Suspect]
     Active Substance: IBRUTINIB
     Indication: Chronic lymphocytic leukaemia
     Route: 048
     Dates: start: 20201113
  2. IMBRUVICA [Suspect]
     Active Substance: IBRUTINIB
     Indication: Chronic lymphocytic leukaemia
     Dosage: STOPPED BETWEEN- 12/01/ 2025 TO 18/01/2025
     Route: 048
     Dates: start: 202209, end: 20250112
  3. IMBRUVICA [Suspect]
     Active Substance: IBRUTINIB
     Indication: Chronic lymphocytic leukaemia
     Route: 048
     Dates: start: 2025

REACTIONS (11)
  - Retinal haemorrhage [Unknown]
  - Skin cancer [Unknown]
  - Eye pain [Unknown]
  - Myalgia [Unknown]
  - Contusion [Unknown]
  - Bone pain [Unknown]
  - Arthralgia [Unknown]
  - Platelet count decreased [Unknown]
  - Skin laceration [Unknown]
  - Depressed mood [Unknown]
  - Malaise [Unknown]

NARRATIVE: CASE EVENT DATE: 20250116
